FAERS Safety Report 12570168 (Version 1)
Quarter: 2016Q3

REPORT INFORMATION
  Report Type: Spontaneous
  Country: US (occurrence: None)
  Receive Date: 20160718
  Receipt Date: 20160718
  Transmission Date: 20161109
  Serious: Yes (Other)
  Sender: FDA-Public Use
  Company Number: None

PATIENT
  Age: 62 Year
  Sex: Female
  Weight: 58.06 kg

DRUGS (8)
  1. LEVAQUIN [Suspect]
     Active Substance: LEVOFLOXACIN
     Indication: INFECTION
     Dosage: 20 TABLETS ONCE A DAY
     Route: 048
     Dates: start: 20110615, end: 20110704
  2. RISEDRONATE SODIUM. [Concomitant]
     Active Substance: RISEDRONATE SODIUM
  3. LISINOPRIL. [Concomitant]
     Active Substance: LISINOPRIL
  4. VITAMIN D3 [Concomitant]
     Active Substance: CHOLECALCIFEROL
  5. FLUTICASONE [Concomitant]
     Active Substance: FLUTICASONE\FLUTICASONE PROPIONATE
  6. DICYCLOMINE [Concomitant]
     Active Substance: DICYCLOMINE HYDROCHLORIDE
  7. LUTEIN [Concomitant]
     Active Substance: LUTEIN
  8. METOPROLOL TARTRATE. [Concomitant]
     Active Substance: METOPROLOL TARTRATE

REACTIONS (15)
  - Pain in extremity [None]
  - Back pain [None]
  - Myalgia [None]
  - Dysstasia [None]
  - Burning sensation [None]
  - Activities of daily living impaired [None]
  - Arthralgia [None]
  - Headache [None]
  - Muscle spasms [None]
  - Disturbance in attention [None]
  - Nightmare [None]
  - Paraesthesia [None]
  - Gait disturbance [None]
  - Arthropathy [None]
  - Insomnia [None]

NARRATIVE: CASE EVENT DATE: 20110616
